FAERS Safety Report 16661691 (Version 4)
Quarter: 2019Q4

REPORT INFORMATION
  Report Type: Spontaneous
  Country: JP (occurrence: JP)
  Receive Date: 20190802
  Receipt Date: 20191002
  Transmission Date: 20200122
  Serious: Yes (Hospitalization)
  Sender: FDA-Public Use
  Company Number: JP-PFIZER INC-2019325018

PATIENT
  Age: 49 Year
  Sex: Female

DRUGS (7)
  1. HALCION [Suspect]
     Active Substance: TRIAZOLAM
     Dosage: 1 MG, DAILY
     Route: 048
  2. ANAFRANIL [Suspect]
     Active Substance: CLOMIPRAMINE HYDROCHLORIDE
     Dosage: 80 MG, UNK
  3. LUNESTA [Suspect]
     Active Substance: ESZOPICLONE
     Dosage: 12 MG, UNK
  4. QUETIAPINE FUMARATE. [Suspect]
     Active Substance: QUETIAPINE FUMARATE
     Dosage: 150 MG, UNK
  5. TRYPTANOL [AMITRIPTYLINE HYDROCHLORIDE] [Suspect]
     Active Substance: AMITRIPTYLINE HYDROCHLORIDE
     Dosage: 40 MG, UNK
  6. DEPAS [ETIZOLAM] [Suspect]
     Active Substance: ETIZOLAM
     Dosage: 5 MG, UNK
  7. LANDSEN [Suspect]
     Active Substance: CLONAZEPAM
     Dosage: 2 MG, UNK

REACTIONS (15)
  - Blood pressure systolic increased [Unknown]
  - Red blood cell count decreased [Unknown]
  - Altered state of consciousness [Unknown]
  - Toxicity to various agents [Unknown]
  - Renal disorder [Unknown]
  - Blood alkaline phosphatase increased [Unknown]
  - Gamma-glutamyltransferase increased [Unknown]
  - Fall [Unknown]
  - Hepatic enzyme increased [Unknown]
  - Haemoglobin decreased [Unknown]
  - Depression [Unknown]
  - Blood pressure diastolic decreased [Unknown]
  - Intentional overdose [Unknown]
  - Haematocrit decreased [Unknown]
  - White blood cell count decreased [Unknown]

NARRATIVE: CASE EVENT DATE: 20190727
